FAERS Safety Report 23832264 (Version 1)
Quarter: 2024Q2

REPORT INFORMATION
  Report Type: Spontaneous
  Country: US (occurrence: None)
  Receive Date: 20240507
  Receipt Date: 20240507
  Transmission Date: 20240716
  Serious: Yes (Hospitalization)
  Sender: FDA-Public Use
  Company Number: None

PATIENT
  Sex: Male

DRUGS (2)
  1. OPSUMIT [Suspect]
     Active Substance: MACITENTAN
     Indication: Pulmonary arterial hypertension
     Dosage: FREQUENCY : DAILY;?
     Route: 048
  2. REMODULIN MDV (PAP) [Concomitant]

REACTIONS (8)
  - Diplopia [None]
  - Malaise [None]
  - Cerebrovascular accident [None]
  - Localised infection [None]
  - Dyspnoea exertional [None]
  - Peripheral swelling [None]
  - Joint swelling [None]
  - Peripheral swelling [None]
